FAERS Safety Report 6794003-X (Version None)
Quarter: 2010Q2

REPORT INFORMATION
  Report Type: 
  Country: None (occurrence: None)
  Receive Date: 20100624
  Receipt Date: 20090526
  Transmission Date: 20101027
  Serious: Yes (Life-Threatening, Hospitalization)
  Sender: FDA-Public Use
  Company Number: US-PFIZER INC-2009182765

PATIENT
  Sex: Female
  Weight: 68.038 kg

DRUGS (2)
  1. DEPO-PROVERA [Suspect]
     Indication: CONTRACEPTION
     Route: 030
     Dates: start: 20090225
  2. DEPO-PROVERA [Suspect]
     Indication: MENSTRUAL DISCOMFORT

REACTIONS (1)
  - GRAND MAL CONVULSION [None]
